FAERS Safety Report 7796415 (Version 4)
Quarter: 2018Q3

REPORT INFORMATION
  Report Type: Report from Study
  Country: FR (occurrence: FR)
  Receive Date: 20110202
  Receipt Date: 20180713
  Transmission Date: 20181010
  Serious: Yes (Death, Life-Threatening)
  Sender: FDA-Public Use
  Company Number: FR-PFIZER INC-FR-WYE-G06423810

PATIENT
  Age: 64 Year
  Sex: Male
  Weight: 77 kg

DRUGS (12)
  1. ARACYTINE [Suspect]
     Active Substance: CYTARABINE
     Indication: ACUTE MYELOID LEUKAEMIA
     Dosage: 384 MG, DAILY (ALSO 200 MG/M2 FOR 7 DAYS AND 1000 MG/M? PER 12 H, INFUSED OVER 2 H ON DAYS 1?4)
     Route: 041
     Dates: start: 20100629, end: 20100707
  2. VANCOMYCIN [Concomitant]
     Active Substance: VANCOMYCIN
     Dosage: 3 G, DAILY
     Route: 042
     Dates: start: 20100709, end: 20100713
  3. LEXOMIL [Concomitant]
     Active Substance: BROMAZEPAM
     Dosage: 1 DF, DAILY
     Route: 048
     Dates: start: 20100705
  4. GEMTUZUMAB OZOGAMICIN [Suspect]
     Active Substance: GEMTUZUMAB OZOGAMICIN
     Indication: ACUTE MYELOID LEUKAEMIA
     Dosage: 5 MG, DAILY (3 MG/M2 INFUSED OVER 2H) ON DAYS 1, 4 AND 7
     Route: 042
     Dates: start: 20100629, end: 20100705
  5. METHYLPREDNISOLONE. [Concomitant]
     Active Substance: METHYLPREDNISOLONE
     Indication: PREMEDICATION
  6. FORTUM [Concomitant]
     Active Substance: CEFTAZIDIME
     Dosage: 2 G, DAILY
     Route: 042
     Dates: start: 20100705
  7. HALDOL [Concomitant]
     Active Substance: HALOPERIDOL
     Dosage: 2.5 MG, DAILY
     Route: 048
     Dates: start: 20100705
  8. PERFALGAN [Concomitant]
     Active Substance: ACETAMINOPHEN
     Dosage: 1 G, 3X/DAY
     Route: 042
     Dates: start: 20100708
  9. DAUNORUBICIN [Suspect]
     Active Substance: DAUNORUBICIN
     Indication: ACUTE MYELOID LEUKAEMIA
     Dosage: 115 MG, DAILY (60 MG/M2) ON DAYS 1 TO 3
     Route: 042
     Dates: start: 20100629, end: 20100701
  10. NOXAFIL [Concomitant]
     Active Substance: POSACONAZOLE
     Dosage: 200 MG, 3X/DAY
     Route: 048
     Dates: start: 20100705, end: 20100713
  11. METFORMIN [Concomitant]
     Active Substance: METFORMIN HYDROCHLORIDE
     Dosage: 500 MG, 2X/DAY
     Route: 048
     Dates: start: 20100705
  12. TIORFAN [Concomitant]
     Active Substance: RACECADOTRIL
     Dosage: 100 MG, 3X/DAY
     Route: 048
     Dates: start: 20100705

REACTIONS (2)
  - Hepatotoxicity [Fatal]
  - Venoocclusive liver disease [Fatal]

NARRATIVE: CASE EVENT DATE: 20100712
